FAERS Safety Report 7274641 (Version 13)
Quarter: 2012Q4

REPORT INFORMATION
  Report Type: 
  Country: CA (occurrence: CA)
  Receive Date: 20100209
  Receipt Date: 20121107
  Transmission Date: 20130627
  Serious: Yes (Other)
  Sender: FDA-Public Use
  Company Number: PHHY2009CA31670

PATIENT
  Sex: Male

DRUGS (1)
  1. SANDOSTATIN LAR [Suspect]
     Indication: GASTRINOMA
     Dosage: 20 mg every 4 weeks
     Route: 030
     Dates: start: 20070126

REACTIONS (4)
  - Blood pressure increased [Unknown]
  - Soft tissue neoplasm [Unknown]
  - Blood pressure systolic increased [Unknown]
  - Fatigue [Unknown]
